FAERS Safety Report 4318687-0 (Version None)
Quarter: 2004Q1

REPORT INFORMATION
  Report Type: 
  Country: None (occurrence: None)
  Receive Date: 20040318
  Receipt Date: 20031215
  Transmission Date: 20041129
  Serious: Yes (Other)
  Sender: FDA-Public Use
  Company Number: DE-BRISTOL-MYERS SQUIBB COMPANY-12459046

PATIENT
  Age: 27 Year
  Sex: Female

DRUGS (4)
  1. SUSTIVA [Suspect]
     Indication: HIV INFECTION
  2. STAVUDINE [Suspect]
  3. LAMIVUDINE + ZIDOVUDINE [Suspect]
  4. NELFINAVIR [Suspect]

REACTIONS (3)
  - ANAEMIA [None]
  - PREGNANCY [None]
  - UTERINE LEIOMYOMA [None]
